FAERS Safety Report 4649466-2 (Version None)
Quarter: 2005Q2

REPORT INFORMATION
  Report Type: 
  Country: None (occurrence: None)
  Receive Date: 20050427
  Receipt Date: 20050414
  Transmission Date: 20051028
  Serious: Yes (Other)
  Sender: FDA-Public Use
  Company Number: 2005060730

PATIENT
  Age: 85 Year
  Sex: Female

DRUGS (6)
  1. BEXTRA [Suspect]
     Indication: NERVE COMPRESSION
     Dosage: 10 MG (10 MG, 1  IN 1 D), ORAL
     Route: 048
  2. NORVASC [Suspect]
     Indication: HYPERTENSION
     Dosage: ORAL
     Route: 048
  3. CODEINE PHOSPHATE AND ACETAMINOPHEN [Suspect]
     Indication: POST PROCEDURAL PAIN
     Dosage: ORAL
     Route: 048
     Dates: start: 20020101, end: 20050101
  4. DIAZEPAM [Concomitant]
  5. ESOMEPRAZOLE (ESOMEPRAZOLE) [Concomitant]
  6. ATORVASTATIN CALCIUM [Concomitant]

REACTIONS (4)
  - DRUG INEFFECTIVE [None]
  - FEELING ABNORMAL [None]
  - NERVE COMPRESSION [None]
  - OEDEMA PERIPHERAL [None]
